FAERS Safety Report 9683919 (Version 1)
Quarter: 2013Q4

REPORT INFORMATION
  Report Type: Spontaneous
  Country: US (occurrence: None)
  Receive Date: 20131111
  Receipt Date: 20131111
  Transmission Date: 20140711
  Serious: Yes (Life-Threatening, Disabling, Other)
  Sender: FDA-Public Use
  Company Number: None

PATIENT
  Age: 73 Year
  Sex: Female
  Weight: 63.5 kg

DRUGS (1)
  1. LEVOFLOXACIN 500 MG ?? [Suspect]
     Indication: ATYPICAL PNEUMONIA
     Route: 048
     Dates: start: 20130624, end: 20130627

REACTIONS (9)
  - Arthralgia [None]
  - Headache [None]
  - Pain [None]
  - Musculoskeletal pain [None]
  - Abasia [None]
  - Injury [None]
  - Vision blurred [None]
  - Dysstasia [None]
  - Movement disorder [None]
